FAERS Safety Report 19207637 (Version 1)
Quarter: 2021Q2

REPORT INFORMATION
  Report Type: Spontaneous
  Country: US (occurrence: US)
  Receive Date: 20210503
  Receipt Date: 20210503
  Transmission Date: 20210717
  Serious: No
  Sender: FDA-Public Use
  Company Number: US-RVL_PHARMACEUTICALS-USA-POI0573202100110

PATIENT
  Age: 79 Year
  Sex: Male

DRUGS (2)
  1. UPNEEQ [Suspect]
     Active Substance: OXYMETAZOLINE HYDROCHLORIDE
     Indication: MYASTHENIA GRAVIS
     Dosage: OD
     Route: 047
     Dates: start: 202102, end: 20210219
  2. UPNEEQ [Suspect]
     Active Substance: OXYMETAZOLINE HYDROCHLORIDE
     Dosage: OU
     Route: 047
     Dates: start: 202102, end: 20210219

REACTIONS (7)
  - Eyelid ptosis [Recovering/Resolving]
  - Off label use [Recovered/Resolved]
  - Jaw disorder [Recovering/Resolving]
  - Respiration abnormal [Recovering/Resolving]
  - Gait disturbance [Recovering/Resolving]
  - Dizziness [Recovering/Resolving]
  - Dysphagia [Recovering/Resolving]

NARRATIVE: CASE EVENT DATE: 202102
